FAERS Safety Report 17896111 (Version 1)
Quarter: 2020Q2

REPORT INFORMATION
  Report Type: Spontaneous
  Country: US (occurrence: US)
  Receive Date: 20200615
  Receipt Date: 20200615
  Transmission Date: 20200714
  Serious: Yes (Other)
  Sender: FDA-Public Use
  Company Number: US-SA-2019SA227955

PATIENT

DRUGS (2)
  1. DULCOLAX LIQUID MINT (MAGNESIUM HYDROXIDE) [Suspect]
     Active Substance: MAGNESIUM HYDROXIDE
     Dosage: UNK (USED 1 BOTTLE)
  2. DULCOLAX LIQUID MINT (MAGNESIUM HYDROXIDE) [Suspect]
     Active Substance: MAGNESIUM HYDROXIDE
     Indication: BOWEL MOVEMENT IRREGULARITY
     Dosage: 60 ML
     Dates: start: 20190808

REACTIONS (1)
  - Pancreatitis [Unknown]
